FAERS Safety Report 12649966 (Version 4)
Quarter: 2017Q2

REPORT INFORMATION
  Report Type: Spontaneous
  Country: RU (occurrence: RU)
  Receive Date: 20160813
  Receipt Date: 20170609
  Transmission Date: 20170830
  Serious: Yes (Life-Threatening, Hospitalization, Other)
  Sender: FDA-Public Use
  Company Number: RU-ABBVIE-16K-251-1700433-00

PATIENT
  Age: 9 Year
  Sex: Male

DRUGS (3)
  1. METHOTREXATE. [Concomitant]
     Active Substance: METHOTREXATE
     Indication: JUVENILE IDIOPATHIC ARTHRITIS
     Dates: start: 2011, end: 20160519
  2. SANDIMMUN [Concomitant]
     Active Substance: CYCLOSPORINE
     Indication: JUVENILE IDIOPATHIC ARTHRITIS
     Dates: start: 2011, end: 20160519
  3. HUMIRA [Suspect]
     Active Substance: ADALIMUMAB
     Indication: JUVENILE IDIOPATHIC ARTHRITIS
     Route: 058
     Dates: start: 20160125, end: 20160519

REACTIONS (23)
  - Jaundice [Not Recovered/Not Resolved]
  - Fungal infection [Recovering/Resolving]
  - Gait disturbance [Not Recovered/Not Resolved]
  - Disseminated tuberculosis [Not Recovered/Not Resolved]
  - Ocular icterus [Not Recovered/Not Resolved]
  - Disorientation [Not Recovered/Not Resolved]
  - Multiple organ dysfunction syndrome [Unknown]
  - Asthenia [Recovering/Resolving]
  - Mental disorder [Not Recovered/Not Resolved]
  - Hepatic failure [Recovering/Resolving]
  - Hepatosplenomegaly [Not Recovered/Not Resolved]
  - Speech disorder [Not Recovered/Not Resolved]
  - Neutrophil count increased [Recovering/Resolving]
  - Bacterial infection [Recovering/Resolving]
  - Encephalitis [Not Recovered/Not Resolved]
  - Strabismus [Not Recovered/Not Resolved]
  - Body temperature increased [Not Recovered/Not Resolved]
  - Tonsillitis [Recovering/Resolving]
  - Viral infection [Recovering/Resolving]
  - Tuberculosis of central nervous system [Unknown]
  - Acute respiratory failure [Recovering/Resolving]
  - Quadriparesis [Not Recovered/Not Resolved]
  - Respiratory tract infection viral [Recovering/Resolving]

NARRATIVE: CASE EVENT DATE: 201604
